FAERS Safety Report 7632296-7 (Version None)
Quarter: 2011Q3

REPORT INFORMATION
  Report Type: 
  Country: None (occurrence: None)
  Receive Date: 20110725
  Receipt Date: 20100722
  Transmission Date: 20111222
  Serious: Yes (Other)
  Sender: FDA-Public Use
  Company Number: US-BRISTOL-MYERS SQUIBB COMPANY-15200934

PATIENT
  Age: 77 Year
  Sex: Male

DRUGS (5)
  1. CARDURA [Concomitant]
  2. ZOCOR [Concomitant]
  3. COUMADIN [Suspect]
     Indication: ATRIAL FIBRILLATION
     Dosage: 5MG FOR 2DAYS AND ON THE 3RD DAY 2.5MG.DOSE CHANGED TO 5MG DAILY ON 12JUL2010
     Dates: start: 20070101
  4. ASPIRIN [Concomitant]
  5. ATENOLOL [Concomitant]

REACTIONS (1)
  - PROTHROMBIN TIME PROLONGED [None]
